FAERS Safety Report 20371215 (Version 2)
Quarter: 2022Q1

REPORT INFORMATION
  Report Type: Spontaneous
  Country: US (occurrence: None)
  Receive Date: 20220124
  Receipt Date: 20220311
  Transmission Date: 20220424
  Serious: Yes (Life-Threatening, Other)
  Sender: FDA-Public Use
  Company Number: 2022A032963

PATIENT
  Age: 42 Year
  Sex: Female
  Weight: 65.8 kg

DRUGS (1)
  1. EVUSHELD [Suspect]
     Active Substance: CILGAVIMAB\TIXAGEVIMAB
     Route: 030
     Dates: start: 20220111

REACTIONS (5)
  - Pruritus [Recovered/Resolved]
  - Asthma [Recovering/Resolving]
  - Type IV hypersensitivity reaction [Recovering/Resolving]
  - Bronchospasm [Recovering/Resolving]
  - Rash [Recovered/Resolved]

NARRATIVE: CASE EVENT DATE: 20220111
